FAERS Safety Report 6140951-3 (Version None)
Quarter: 2009Q1

REPORT INFORMATION
  Report Type: 
  Country: None (occurrence: None)
  Receive Date: 20090331
  Receipt Date: 20090317
  Transmission Date: 20090719
  Serious: Yes (Life-Threatening, Hospitalization)
  Sender: FDA-Public Use
  Company Number: 2009000822

PATIENT
  Age: 73 Year
  Sex: Male

DRUGS (7)
  1. ERLOTINIB (ERLOTINIB) (TABLET) (ERLOTINIB) [Suspect]
     Indication: NON-SMALL CELL LUNG CANCER
     Dosage: (150 MG, QD DAYS 1 TO 12), ORAL
     Route: 048
     Dates: start: 20090114, end: 20090219
  2. DOCETAXEL [Suspect]
     Indication: NON-SMALL CELL LUNG CANCER
     Dosage: (350 MG, DAY 15), INTRAVENOUS
     Route: 042
     Dates: start: 20090128
  3. MEDROL ACETATE [Concomitant]
  4. ZANTAC 150 [Concomitant]
  5. CETIRIZINE HCL [Concomitant]
  6. LANTUS [Concomitant]
  7. COAPROVEL (KARVEA HCT) [Concomitant]

REACTIONS (3)
  - ANAEMIA [None]
  - INFECTION [None]
  - PO2 DECREASED [None]
